FAERS Safety Report 7350467-4 (Version None)
Quarter: 2011Q1

REPORT INFORMATION
  Report Type: 
  Country: None (occurrence: None)
  Receive Date: 20110314
  Receipt Date: 20090923
  Transmission Date: 20110831
  Serious: Yes (Hospitalization, Other)
  Sender: FDA-Public Use
  Company Number: PHHY2009DE67232

PATIENT

DRUGS (2)
  1. EXTAVIA [Suspect]
     Dosage: UNK
     Route: 058
     Dates: end: 20091013
  2. EXTAVIA [Suspect]
     Dosage: UNK
     Route: 058
     Dates: start: 20090417

REACTIONS (4)
  - MOVEMENT DISORDER [None]
  - MULTIPLE SCLEROSIS RELAPSE [None]
  - CEREBROVASCULAR ACCIDENT [None]
  - HEMIPLEGIA [None]
